FAERS Safety Report 21184099 (Version 2)
Quarter: 2022Q3

REPORT INFORMATION
  Report Type: Report from Study
  Country: IT (occurrence: None)
  Receive Date: 20220808
  Receipt Date: 20220906
  Transmission Date: 20221027
  Serious: Yes (Other)
  Sender: FDA-Public Use
  Company Number: IT-ROCHE-3152302

PATIENT
  Age: 59 Year
  Weight: 86 kg

DRUGS (9)
  1. ATEZOLIZUMAB [Suspect]
     Active Substance: ATEZOLIZUMAB
     Indication: Malignant melanoma
     Dosage: LAST DOSE PRIOR TO ADVERSE EVENT/ SPECIAL SITUATION WAS GIVEN ON 06/JUL/2022.
     Route: 065
     Dates: start: 20220706, end: 20220726
  2. VEMURAFENIB [Suspect]
     Active Substance: VEMURAFENIB
     Indication: Malignant melanoma
     Dosage: LAST DOSE PRIOR TO ADVERSE EVENT/SPECIAL SITUATION WAS GIVEN ON 17/JUL/2022
     Route: 048
     Dates: start: 20220615
  3. COBIMETINIB [Suspect]
     Active Substance: COBIMETINIB
     Indication: Malignant melanoma
     Dosage: LAST DOSE PRIOR TO ADVERSE EVENT/SPECIAL SITUATION WAS GIVEN ON 17/JUL/2022
     Route: 048
     Dates: start: 20220615
  4. PREDNISONE [Concomitant]
     Active Substance: PREDNISONE
     Dates: start: 20220727
  5. PANTOPRAZOLE SODIUM [Concomitant]
     Active Substance: PANTOPRAZOLE SODIUM
     Dates: start: 20220727
  6. DEURSIL [Concomitant]
     Active Substance: URSODIOL
     Dates: start: 20220726
  7. ADEMETIONINE [Concomitant]
     Active Substance: ADEMETIONINE
     Dates: start: 20220726, end: 20220813
  8. FLUIMUCIL [Concomitant]
     Active Substance: ACETYLCYSTEINE
     Dates: start: 20220726, end: 20220805
  9. HYDROCHLOROTHIAZIDE\RAMIPRIL [Concomitant]
     Active Substance: HYDROCHLOROTHIAZIDE\RAMIPRIL
     Dosage: UNIT:1 CPR/DIE?5+ 25 MG CPR
     Dates: start: 20220705

REACTIONS (1)
  - Hepatitis [Recovering/Resolving]

NARRATIVE: CASE EVENT DATE: 20220718
